FAERS Safety Report 5944544-X (Version None)
Quarter: 2008Q4

REPORT INFORMATION
  Report Type: 
  Country: None (occurrence: None)
  Receive Date: 20081107
  Receipt Date: 20081103
  Transmission Date: 20090506
  Serious: Yes (Death, Hospitalization)
  Sender: FDA-Public Use
  Company Number: DE-BAYER-200829761GPV

PATIENT
  Sex: Female
  Weight: 92 kg

DRUGS (8)
  1. AVELOX [Suspect]
     Indication: DRUG USE FOR UNKNOWN INDICATION
     Dosage: TOTAL DAILY DOSE: 400 MG  UNIT DOSE: 400 MG
     Route: 042
     Dates: start: 20070726, end: 20070726
  2. AVELOX [Suspect]
     Dosage: TOTAL DAILY DOSE: 400 MG  UNIT DOSE: 400 MG
     Route: 048
     Dates: start: 20070727, end: 20070805
  3. CEFUROXIME [Suspect]
     Indication: URINARY TRACT INFECTION
     Dosage: TOTAL DAILY DOSE: 1500 MG  UNIT DOSE: 1500 MG
     Route: 042
     Dates: start: 20070807, end: 20070815
  4. CEFUROXIME [Suspect]
     Dosage: TOTAL DAILY DOSE: 4500 MG  UNIT DOSE: 1500 MG
     Route: 042
     Dates: start: 20070807, end: 20070807
  5. CEFUROXIME [Suspect]
     Dosage: TOTAL DAILY DOSE: 3000 MG  UNIT DOSE: 1500 MG
     Route: 042
     Dates: start: 20070806, end: 20070806
  6. ZYVOXID [Suspect]
     Indication: PNEUMONIA STAPHYLOCOCCAL
     Route: 042
     Dates: start: 20070808, end: 20070816
  7. ASPIRIN [Concomitant]
     Indication: DRUG USE FOR UNKNOWN INDICATION
     Route: 048
     Dates: end: 20070601
  8. INSULIN [Concomitant]
     Indication: DRUG USE FOR UNKNOWN INDICATION
     Route: 065
     Dates: start: 20000101, end: 20070601

REACTIONS (4)
  - BLOOD BILIRUBIN INCREASED [None]
  - HEPATIC FAILURE [None]
  - HEPATITIS ACUTE [None]
  - TRANSAMINASES INCREASED [None]
